FAERS Safety Report 6966038-5 (Version None)
Quarter: 2010Q3

REPORT INFORMATION
  Report Type: 
  Country: None (occurrence: None)
  Receive Date: 20100903
  Receipt Date: 20100511
  Transmission Date: 20110219
  Serious: No
  Sender: FDA-Public Use
  Company Number: A0859138A

PATIENT
  Age: 53 Year
  Sex: Female

DRUGS (7)
  1. LAMICTAL [Suspect]
     Indication: BIPOLAR DISORDER
     Dosage: 200MG TWICE PER DAY
     Route: 048
     Dates: start: 20100504
  2. EFFEXOR [Concomitant]
  3. ENJUVIA [Concomitant]
  4. PROMETRIUM [Concomitant]
  5. PROPYLTHIOURACIL [Concomitant]
  6. INDERAL [Concomitant]
  7. NEURONTIN [Concomitant]

REACTIONS (1)
  - RASH [None]
